FAERS Safety Report 7962233-7 (Version None)
Quarter: 2011Q4

REPORT INFORMATION
  Report Type: 
  Country: None (occurrence: None)
  Receive Date: 20111207
  Receipt Date: 20111130
  Transmission Date: 20120403
  Serious: Yes (Hospitalization, Other)
  Sender: FDA-Public Use
  Company Number: PHHY2011NO79836

PATIENT
  Sex: Male

DRUGS (4)
  1. WARFARIN SODIUM [Concomitant]
     Indication: CEREBRAL INFARCTION
     Route: 048
     Dates: start: 19940101, end: 20110801
  2. VOLTAREN [Suspect]
     Indication: TENDONITIS
     Dosage: UNK
     Route: 048
     Dates: end: 20110801
  3. VOLTAREN [Suspect]
     Route: 048
     Dates: start: 20110701, end: 20110801
  4. ARCOXIA [Suspect]
     Indication: TENDONITIS
     Route: 048
     Dates: start: 20110808, end: 20110822

REACTIONS (12)
  - GENERAL PHYSICAL HEALTH DETERIORATION [None]
  - ABDOMINAL PAIN [None]
  - MELAENA [None]
  - HAEMOGLOBIN DECREASED [None]
  - BLOOD PRESSURE FLUCTUATION [None]
  - COLD SWEAT [None]
  - INTERNATIONAL NORMALISED RATIO INCREASED [None]
  - GASTRIC ULCER [None]
  - HAEMORRHAGIC DIATHESIS [None]
  - HAEMORRHAGIC ANAEMIA [None]
  - NAUSEA [None]
  - VERTIGO [None]
